FAERS Safety Report 15627048 (Version 2)
Quarter: 2018Q4

REPORT INFORMATION
  Report Type: Spontaneous
  Country: US (occurrence: US)
  Receive Date: 20181116
  Receipt Date: 20181124
  Transmission Date: 20190205
  Serious: Yes (Hospitalization)
  Sender: FDA-Public Use
  Company Number: US-IPSEN BIOPHARMACEUTICALS, INC.-2018-17314

PATIENT
  Sex: Female
  Weight: 104.8 kg

DRUGS (3)
  1. LOSARTAN. [Concomitant]
     Active Substance: LOSARTAN
  2. MOTRIN [Concomitant]
     Active Substance: IBUPROFEN
  3. SOMATULINE DEPOT [Suspect]
     Active Substance: LANREOTIDE ACETATE
     Indication: CARCINOID TUMOUR
     Route: 030
     Dates: start: 20170523

REACTIONS (2)
  - Asthenia [Unknown]
  - Vomiting [Unknown]
